FAERS Safety Report 7531858-5 (Version None)
Quarter: 2011Q2

REPORT INFORMATION
  Report Type: 
  Country: None (occurrence: None)
  Receive Date: 20110608
  Receipt Date: 20110605
  Transmission Date: 20111010
  Serious: Yes (Other)
  Sender: FDA-Public Use
  Company Number: KW-ROCHE-781048

PATIENT
  Age: 51 Year
  Sex: Male
  Weight: 77 kg

DRUGS (4)
  1. PEGASYS [Suspect]
     Indication: HEPATITIS C
     Dosage: DOSE: REPORTED AS 180.
     Route: 058
     Dates: start: 20110306
  2. INSULIN [Concomitant]
     Indication: DIABETES MELLITUS
  3. RIBAVIRIN [Suspect]
     Indication: HEPATITIS C
     Dosage: FREQUENCY: REPORTED AS DAILY.
     Route: 048
     Dates: start: 20110306
  4. ZOCOR [Concomitant]

REACTIONS (1)
  - RHABDOMYOLYSIS [None]
